FAERS Safety Report 8343173-0 (Version None)
Quarter: 2012Q2

REPORT INFORMATION
  Report Type: 
  Country: None (occurrence: None)
  Receive Date: 20120504
  Receipt Date: 20120504
  Transmission Date: 20120825
  Serious: Yes (Other)
  Sender: FDA-Public Use
  Company Number: None

PATIENT
  Age: 48 Year
  Sex: Female

DRUGS (3)
  1. INCIVEK [Suspect]
     Dosage: 2 TABS TID PO
     Route: 048
  2. RIBAVIRIN [Concomitant]
     Dosage: 400MG BID PO
     Route: 048
     Dates: start: 20120401
  3. PEG-INTRON [Suspect]
     Dosage: 80 MCG Q WK SQ
     Route: 058
     Dates: start: 20120401

REACTIONS (3)
  - NAUSEA [None]
  - PAIN [None]
  - VOMITING [None]
